APPROVED DRUG PRODUCT: DIPHENYLAN SODIUM
Active Ingredient: PHENYTOIN SODIUM
Strength: 30MG PROMPT
Dosage Form/Route: CAPSULE;ORAL
Application: A080857 | Product #001
Applicant: CHARTWELL MOLECULAR HOLDINGS LLC
Approved: Approved Prior to Jan 1, 1982 | RLD: No | RS: No | Type: DISCN